FAERS Safety Report 7232912-8 (Version None)
Quarter: 2011Q1

REPORT INFORMATION
  Report Type: 
  Country: None (occurrence: None)
  Receive Date: 20110119
  Receipt Date: 20110110
  Transmission Date: 20110831
  Serious: Yes (Other)
  Sender: FDA-Public Use
  Company Number: PHHY2010CA79874

PATIENT
  Sex: Female

DRUGS (6)
  1. CALCIUM CITRATE W/VITAMIN D NOS [Suspect]
  2. ACLASTA [Suspect]
     Indication: OSTEOPOROSIS
     Dosage: 5 MG, UNK
     Route: 042
     Dates: start: 20100101, end: 20101119
  3. IMOVANE [Concomitant]
  4. MULTI-VITAMIN [Concomitant]
  5. TYLENOL [Concomitant]
  6. LIPITOR [Concomitant]

REACTIONS (2)
  - MIGRAINE [None]
  - NAUSEA [None]
